FAERS Safety Report 4290358-9 (Version None)
Quarter: 2004Q1

REPORT INFORMATION
  Report Type: 
  Country: None (occurrence: None)
  Receive Date: 20040206
  Receipt Date: 20040206
  Transmission Date: 20041129
  Serious: Yes (Hospitalization)
  Sender: FDA-Public Use
  Company Number: None

PATIENT
  Age: 85 Year
  Sex: Male
  Weight: 105 kg

DRUGS (1)
  1. QUININE [Suspect]
     Indication: MUSCLE CRAMP
     Dosage: 300 MG QHS ORAL
     Route: 048
     Dates: start: 20030808, end: 20031106

REACTIONS (1)
  - PANCYTOPENIA [None]
